FAERS Safety Report 8347637-5 (Version None)
Quarter: 2012Q2

REPORT INFORMATION
  Report Type: 
  Country: None (occurrence: None)
  Receive Date: 20120509
  Receipt Date: 20120427
  Transmission Date: 20120825
  Serious: Yes (Hospitalization, Other)
  Sender: FDA-Public Use
  Company Number: JP-VERTEX PHARMACEUTICALS INC.-AE-2012-003747

PATIENT
  Age: 66 Year
  Sex: Female

DRUGS (16)
  1. FAMOTIDINE [Concomitant]
     Route: 048
  2. ZOLPIDEM [Concomitant]
     Route: 048
     Dates: start: 20120302
  3. ROHYPNOL [Concomitant]
     Route: 048
     Dates: start: 20120326
  4. RIZE [Concomitant]
     Route: 048
     Dates: start: 20120327
  5. REBETOL [Concomitant]
     Route: 048
     Dates: start: 20120211, end: 20120217
  6. PRIMPERAN TAB [Concomitant]
     Route: 048
     Dates: start: 20120309
  7. ALPRAZOLAM [Concomitant]
     Route: 048
     Dates: start: 20120327
  8. PEG-INTRON [Concomitant]
     Indication: HEPATITIS C
     Route: 058
     Dates: start: 20120120
  9. REBETOL [Concomitant]
     Route: 048
     Dates: start: 20120413
  10. FAMOTIDINE [Concomitant]
     Route: 048
  11. MAGNESIUM SULFATE [Concomitant]
     Route: 048
  12. REBETOL [Concomitant]
     Indication: HEPATITIS C
     Route: 048
     Dates: start: 20120120, end: 20120210
  13. SENNOSIDE [Concomitant]
     Route: 048
  14. TELAVIC (TELAPREVIR) [Suspect]
     Indication: HEPATITIS C
     Route: 048
     Dates: start: 20120120, end: 20120330
  15. REBETOL [Concomitant]
     Route: 048
     Dates: start: 20120218, end: 20120330
  16. LEVOFLOXACIN [Concomitant]
     Route: 047

REACTIONS (4)
  - DECREASED APPETITE [None]
  - MALAISE [None]
  - LOSS OF CONSCIOUSNESS [None]
  - ANAEMIA [None]
